FAERS Safety Report 14107408 (Version 2)
Quarter: 2017Q4

REPORT INFORMATION
  Report Type: Spontaneous
  Country: US (occurrence: US)
  Receive Date: 20171019
  Receipt Date: 20171201
  Transmission Date: 20180321
  Serious: Yes (Other)
  Sender: FDA-Public Use
  Company Number: US-TEVA-815543USA

PATIENT
  Age: 58 Year
  Sex: Female
  Weight: 66.74 kg

DRUGS (1)
  1. NUVIGIL [Suspect]
     Active Substance: ARMODAFINIL
     Indication: FATIGUE
     Dosage: 250 MILLIGRAM DAILY; ONCE DAILY IN THE MORNING
     Dates: start: 201610

REACTIONS (4)
  - Feeling abnormal [Unknown]
  - Drug ineffective [Recovered/Resolved]
  - Loss of consciousness [Unknown]
  - Fatigue [Unknown]

NARRATIVE: CASE EVENT DATE: 201610
